FAERS Safety Report 8845251 (Version 1)
Quarter: 2012Q4

REPORT INFORMATION
  Report Type: Spontaneous
  Country: ES (occurrence: None)
  Receive Date: 20121015
  Receipt Date: 20121015
  Transmission Date: 20130627
  Serious: Yes (Death, Hospitalization)
  Sender: FDA-Public Use
  Company Number: 2012AP003341

PATIENT
  Age: 78 Year
  Sex: Female

DRUGS (1)
  1. METFORMIN (METFORMIN) [Suspect]
     Indication: TYPE 2 DIABETES MELLITUS

REACTIONS (9)
  - Lactic acidosis [None]
  - Bundle branch block right [None]
  - Multi-organ failure [None]
  - Haemodynamic instability [None]
  - Bradycardia [None]
  - Blood pressure decreased [None]
  - Continuous haemodiafiltration [None]
  - Anuria [None]
  - Muscular weakness [None]
